FAERS Safety Report 15428271 (Version 1)
Quarter: 2018Q3

REPORT INFORMATION
  Report Type: Other
  Country: GB (occurrence: GB)
  Receive Date: 20180926
  Receipt Date: 20180926
  Transmission Date: 20181010
  Serious: Yes (Other)
  Sender: FDA-Public Use
  Company Number: GB-LUPIN PHARMACEUTICALS INC.-2018-06654

PATIENT
  Age: 16 Year
  Sex: Female

DRUGS (1)
  1. QUETIAPINE FUMARATE. [Suspect]
     Active Substance: QUETIAPINE FUMARATE
     Indication: INSOMNIA
     Dosage: 100 MG, QD
     Route: 048
     Dates: start: 2018

REACTIONS (7)
  - Somnolence [Not Recovered/Not Resolved]
  - Dry mouth [Not Recovered/Not Resolved]
  - Nausea [Not Recovered/Not Resolved]
  - Abnormal dreams [Not Recovered/Not Resolved]
  - Blood prolactin increased [Not Recovered/Not Resolved]
  - Abnormal weight gain [Not Recovered/Not Resolved]
  - Nightmare [Not Recovered/Not Resolved]
